FAERS Safety Report 8447681-3 (Version None)
Quarter: 2012Q2

REPORT INFORMATION
  Report Type: 
  Country: None (occurrence: None)
  Receive Date: 20120612
  Receipt Date: 20120520
  Transmission Date: 20120825
  Serious: Yes (Other)
  Sender: FDA-Public Use
  Company Number: 2012050120

PATIENT
  Sex: Male
  Weight: 71.2147 kg

DRUGS (3)
  1. BANZEL (RUFINAMIDE) [Concomitant]
  2. FELBATOL [Suspect]
     Indication: MYOCLONIC EPILEPSY
     Dosage: (900 MG, ONCE DAILY IN THE AM), ORAL (600 MG, ONCE DAILY IN THE PM), ORAL
     Route: 048
     Dates: start: 19900101
  3. FELBATOL [Suspect]
     Indication: MYOCLONIC EPILEPSY
     Dosage: (900 MG, ONCE DAILY IN THE AM), ORAL (600 MG, ONCE DAILY IN THE PM), ORAL
     Route: 048
     Dates: start: 19900101

REACTIONS (4)
  - GASTROINTESTINAL DISORDER [None]
  - DECREASED APPETITE [None]
  - GASTROOESOPHAGEAL REFLUX DISEASE [None]
  - GRAND MAL CONVULSION [None]
